FAERS Safety Report 6130523-9 (Version None)
Quarter: 2009Q1

REPORT INFORMATION
  Report Type: 
  Country: None (occurrence: None)
  Receive Date: 20090323
  Receipt Date: 20090317
  Transmission Date: 20090719
  Serious: Yes (Death, Other)
  Sender: FDA-Public Use
  Company Number: 2008JP005169

PATIENT
  Age: 69 Year
  Sex: Male

DRUGS (12)
  1. FUNGUARD(MICAFUNGIN) INJECTION [Suspect]
     Indication: FEBRILE NEUTROPENIA
     Dosage: 150 MG/D
  2. PREDNISOLONE [Concomitant]
  3. MEROPENEM (MEROPENEM) FORMULATION UNKNOWN [Concomitant]
  4. METHYLPREDNISOLONE [Concomitant]
  5. IDARUBICIN (IDARUBICIN) FORMULATION UNKNOWN [Concomitant]
  6. CYTOSINE ARABINOSIDE (CYTARABINE) FORMULATION UNKNOWN [Concomitant]
  7. INSULIN (INSULIN) INJECTION [Concomitant]
  8. GRANULOCYTE COLONY STIMULATING FACTOR (GRANULOCYTE COLONY STIMULATING [Concomitant]
  9. ARBEKACIN (ARBEKACIN) FORMULATION UNKNOWN [Concomitant]
  10. AMIKACIN (AMIKACIN) FORMULATION UNKNOWN [Concomitant]
  11. DAUNOMYCIN (DAUNORUBICIN) FORMULATION UNKNOWN [Concomitant]
  12. ARA-C (CYTARABINE) FORMULATION UNKNOWN [Concomitant]

REACTIONS (12)
  - BRONCHOPULMONARY ASPERGILLOSIS [None]
  - CHEST PAIN [None]
  - CONDITION AGGRAVATED [None]
  - GASTRITIS EROSIVE [None]
  - GASTROINTESTINAL HAEMORRHAGE [None]
  - GASTROINTESTINAL NECROSIS [None]
  - LOBAR PNEUMONIA [None]
  - MUCORMYCOSIS [None]
  - PHAGOCYTOSIS [None]
  - RESPIRATORY FAILURE [None]
  - SHOCK HAEMORRHAGIC [None]
  - STAPHYLOCOCCAL INFECTION [None]
